FAERS Safety Report 6894019-9 (Version None)
Quarter: 2010Q3

REPORT INFORMATION
  Report Type: 
  Country: None (occurrence: None)
  Receive Date: 20100802
  Receipt Date: 20100726
  Transmission Date: 20110219
  Serious: Yes (Other)
  Sender: FDA-Public Use
  Company Number: US-ASTRAZENECA-2006UW11538

PATIENT
  Age: 672 Month
  Sex: Female
  Weight: 80.7 kg

DRUGS (18)
  1. SEROQUEL [Suspect]
     Indication: DEPRESSION
     Route: 048
     Dates: start: 20030917
  2. SEROQUEL [Suspect]
     Indication: SCHIZOPHRENIA
     Route: 048
     Dates: start: 20030917
  3. SEROQUEL [Suspect]
     Route: 048
     Dates: start: 20040301, end: 20040601
  4. SEROQUEL [Suspect]
     Route: 048
     Dates: start: 20040301, end: 20040601
  5. SEROQUEL [Suspect]
     Dosage: 300 MG TO 600 MG DAILY
     Route: 048
     Dates: start: 20040618
  6. SEROQUEL [Suspect]
     Dosage: 300 MG TO 600 MG DAILY
     Route: 048
     Dates: start: 20040618
  7. HALDOL [Concomitant]
     Route: 048
     Dates: start: 20020901
  8. RISPERDAL [Concomitant]
     Route: 048
     Dates: start: 20050701
  9. ZYPREXA [Concomitant]
     Route: 048
  10. NORVASC [Concomitant]
     Indication: BLOOD PRESSURE
     Route: 048
  11. ENALAPRIL [Concomitant]
     Indication: BLOOD PRESSURE
     Route: 048
  12. ALBUTEROL [Concomitant]
  13. CODEINE [Concomitant]
     Indication: SCIATICA
     Route: 048
  14. TEMAZEPAM [Concomitant]
     Indication: INSOMNIA
  15. TEMAZEPAM [Concomitant]
     Indication: ANXIETY
  16. LORAZEPAM [Concomitant]
     Indication: AGITATION
     Route: 048
  17. DIOVAN [Concomitant]
     Dates: start: 20100305
  18. VICODIN [Concomitant]
     Indication: PAIN
     Dosage: 5-500 EVERY FOUR HOURS
     Dates: start: 20100305

REACTIONS (4)
  - HYPERGLYCAEMIA [None]
  - MULTIPLE FRACTURES [None]
  - OPEN WOUND [None]
  - TYPE 2 DIABETES MELLITUS [None]
